FAERS Safety Report 4705406-9 (Version None)
Quarter: 2005Q3

REPORT INFORMATION
  Report Type: 
  Country: None (occurrence: None)
  Receive Date: 20050701
  Receipt Date: 20031211
  Transmission Date: 20060218
  Serious: Yes (Hospitalization)
  Sender: FDA-Public Use
  Company Number: FR-GLAXOSMITHKLINE-B0317474A

PATIENT
  Age: 74 Year
  Sex: Male

DRUGS (4)
  1. AUGMENTIN '125' [Suspect]
     Dosage: 1G THREE TIMES PER DAY
     Route: 042
     Dates: start: 20030828, end: 20030901
  2. FRAXODI [Suspect]
     Dosage: .6ML PER DAY
     Route: 058
     Dates: start: 20030828, end: 20030831
  3. TOPALGIC ( FRANCE ) [Suspect]
     Dosage: 4UNIT PER DAY
     Route: 042
     Dates: start: 20030828, end: 20030831
  4. FONZYLANE [Suspect]
     Route: 042
     Dates: start: 20030828, end: 20030901

REACTIONS (5)
  - BLOOD ALKALINE PHOSPHATASE INCREASED [None]
  - BLOOD BILIRUBIN INCREASED [None]
  - GAMMA-GLUTAMYLTRANSFERASE INCREASED [None]
  - HEPATITIS [None]
  - TRANSAMINASES INCREASED [None]
